FAERS Safety Report 4968079-6 (Version None)
Quarter: 2006Q2

REPORT INFORMATION
  Report Type: 
  Country: None (occurrence: None)
  Receive Date: 20060410
  Receipt Date: 20060330
  Transmission Date: 20061013
  Serious: Yes (Hospitalization)
  Sender: FDA-Public Use
  Company Number: IT-ROCHE-442922

PATIENT
  Age: 65 Year
  Sex: Male

DRUGS (4)
  1. TICLID [Suspect]
     Indication: ANGIOPLASTY
     Route: 048
     Dates: start: 20060111, end: 20060303
  2. ASPIRIN [Concomitant]
     Indication: DRUG USE FOR UNKNOWN INDICATION
     Route: 048
  3. TORVAST [Concomitant]
     Indication: DRUG USE FOR UNKNOWN INDICATION
     Route: 048
  4. BIFRIL [Concomitant]
     Indication: DRUG USE FOR UNKNOWN INDICATION
     Route: 048

REACTIONS (3)
  - BONE MARROW FAILURE [None]
  - BRONCHOPNEUMONIA [None]
  - IMMUNODEFICIENCY [None]
